FAERS Safety Report 5373783-4 (Version None)
Quarter: 2007Q2

REPORT INFORMATION
  Report Type: 
  Country: None (occurrence: None)
  Receive Date: 20070628
  Receipt Date: 20070625
  Transmission Date: 20071010
  Serious: Yes (Death, Other)
  Sender: FDA-Public Use
  Company Number: IN-ELI_LILLY_AND_COMPANY-IN200706005346

PATIENT
  Age: 81 Year
  Sex: Male

DRUGS (6)
  1. HUMULIN R [Suspect]
     Indication: DIABETES MELLITUS NON-INSULIN-DEPENDENT
     Dosage: 8 IU EACH MORNING
     Route: 058
     Dates: start: 20070401
  2. HUMULIN R [Suspect]
     Dosage: 6 IU, EACH EVENING
     Route: 058
     Dates: start: 20070401
  3. HUMAN INSULIN (RDNA ORIGIN) NPH [Suspect]
     Indication: DIABETES MELLITUS NON-INSULIN-DEPENDENT
     Dosage: 8 IU EACH MORNING
     Route: 058
     Dates: start: 20070401
  4. HUMAN INSULIN (RDNA ORIGIN) NPH [Suspect]
     Dosage: 6 IU, EACH EVENING
     Route: 058
     Dates: start: 20070401
  5. ANTIHYPERTENSIVES [Concomitant]
  6. CARDIAC THERAPY [Concomitant]

REACTIONS (2)
  - BLOOD GLUCOSE DECREASED [None]
  - MYOCARDIAL INFARCTION [None]
